FAERS Safety Report 23582349 (Version 2)
Quarter: 2025Q3

REPORT INFORMATION
  Report Type: Spontaneous
  Country: US (occurrence: US)
  Receive Date: 20240229
  Receipt Date: 20250814
  Transmission Date: 20251021
  Serious: No
  Sender: SANOFI AVENTIS
  Company Number: US-SA-SAC20240227001440

PATIENT
  Sex: Female

DRUGS (1)
  1. KEVZARA [Suspect]
     Active Substance: SARILUMAB
     Indication: Rheumatoid arthritis
     Dosage: 200 MG, QOW
     Route: 058
     Dates: start: 202302

REACTIONS (4)
  - Pain [Unknown]
  - Joint swelling [Unknown]
  - Peripheral swelling [Unknown]
  - Inappropriate schedule of product administration [Unknown]
